FAERS Safety Report 4892861-7 (Version None)
Quarter: 2006Q1

REPORT INFORMATION
  Report Type: 
  Country: None (occurrence: None)
  Receive Date: 20060126
  Receipt Date: 20060123
  Transmission Date: 20060701
  Serious: Yes (Death, Hospitalization)
  Sender: FDA-Public Use
  Company Number: US-MERCK-0601USA02829

PATIENT
  Age: 82 Year
  Sex: Female
  Weight: 50 kg

DRUGS (8)
  1. VIOXX [Suspect]
     Indication: ARTHRITIS
     Route: 048
     Dates: start: 20030101, end: 20041001
  2. FUROSEMIDE [Concomitant]
     Route: 065
  3. REMINYL [Concomitant]
     Route: 065
  4. MIACALCIN [Concomitant]
     Route: 065
  5. ATENOLOL [Concomitant]
     Route: 065
  6. ZYPREXA [Concomitant]
     Route: 065
  7. POTASSIUM CHLORIDE [Concomitant]
     Route: 065
  8. PROMETHAZINE [Concomitant]
     Route: 065

REACTIONS (3)
  - ACUTE MYOCARDIAL INFARCTION [None]
  - ARTERIOSCLEROSIS CORONARY ARTERY [None]
  - PNEUMONIA [None]
